FAERS Safety Report 11414027 (Version 1)
Quarter: 2015Q3

REPORT INFORMATION
  Report Type: Spontaneous
  Country: US (occurrence: US)
  Receive Date: 20150824
  Receipt Date: 20150824
  Transmission Date: 20151125
  Serious: No
  Sender: FDA-Public Use
  Company Number: US-SUN PHARMACEUTICAL INDUSTRIES LTD-2015SUN01678

PATIENT
  Age: 60 Year
  Sex: Male

DRUGS (3)
  1. TAKING EITHER ASPIRIN OR TYLENOL [Concomitant]
  2. TECHNETIUM TC99M PYROPHOSPHATE [Suspect]
     Active Substance: TECHNETIUM TC-99M PYROPHOSPHATE
     Indication: MULTIPLE GATED ACQUISITION SCAN
     Dosage: 3ML,ENTIREVIAL, IV, OD
     Route: 042
     Dates: start: 20140806, end: 20140806
  3. ASPIRIN. [Concomitant]
     Active Substance: ASPIRIN

REACTIONS (1)
  - Urticaria [Recovered/Resolved]

NARRATIVE: CASE EVENT DATE: 20140806
